FAERS Safety Report 20365497 (Version 1)
Quarter: 2022Q1

REPORT INFORMATION
  Report Type: Spontaneous
  Country: IN (occurrence: IN)
  Receive Date: 20220122
  Receipt Date: 20220122
  Transmission Date: 20220423
  Serious: Yes (Hospitalization, Other)
  Sender: FDA-Public Use
  Company Number: IN-NOVARTISPH-NVSC2022IN009086

PATIENT
  Age: 40 Year
  Sex: Male

DRUGS (6)
  1. CERITINIB [Suspect]
     Active Substance: CERITINIB
     Indication: Lung carcinoma cell type unspecified stage IV
     Dosage: 100 MG, 4 MONTH
     Route: 065
  2. ADPEM [Concomitant]
     Indication: Product used for unknown indication
     Dosage: UNK
     Route: 065
  3. TORSEMIDE [Concomitant]
     Active Substance: TORSEMIDE
     Indication: Product used for unknown indication
     Dosage: 100 MG, QD (FOR 30 DAYS)
     Route: 065
  4. ROSUVASTATIN [Concomitant]
     Active Substance: ROSUVASTATIN
     Indication: Product used for unknown indication
     Dosage: 20 MG, QD (AT NIGHT)
     Route: 065
  5. CALCIROL [Concomitant]
     Indication: Product used for unknown indication
     Dosage: UNK, QW ( 1 SACHET ONCE A WEEK FOR 5 WEEK)
     Route: 065
  6. NEOPRIDE [Concomitant]
     Indication: Product used for unknown indication
     Dosage: 25 MG, TID (FOR ONE MONTH)
     Route: 065

REACTIONS (9)
  - Dyspnoea [Recovered/Resolved]
  - Cough [Recovered/Resolved]
  - Pyrexia [Recovered/Resolved]
  - Chest pain [Unknown]
  - Procalcitonin abnormal [Unknown]
  - Peripheral swelling [Recovered/Resolved]
  - Lung carcinoma cell type unspecified stage II [Unknown]
  - Malignant neoplasm progression [Unknown]
  - Metastases to liver [Unknown]

NARRATIVE: CASE EVENT DATE: 20210427
